FAERS Safety Report 13711791 (Version 1)
Quarter: 2017Q3

REPORT INFORMATION
  Report Type: Spontaneous
  Country: US (occurrence: US)
  Receive Date: 20170703
  Receipt Date: 20170703
  Transmission Date: 20171127
  Serious: No
  Sender: FDA-Public Use
  Company Number: US-BAYER-2017-127107

PATIENT
  Sex: Female

DRUGS (1)
  1. BETASERON [Suspect]
     Active Substance: INTERFERON BETA-1B

REACTIONS (4)
  - Migraine [Recovering/Resolving]
  - Pain [Recovering/Resolving]
  - Therapy cessation [Recovering/Resolving]
  - Injection site pain [Recovering/Resolving]
